FAERS Safety Report 5413043-6 (Version None)
Quarter: 2007Q3

REPORT INFORMATION
  Report Type: 
  Country: None (occurrence: None)
  Receive Date: 20070802
  Receipt Date: 20070717
  Transmission Date: 20080115
  Serious: Yes (Other)
  Sender: FDA-Public Use
  Company Number: ALB-003-07-AT

PATIENT
  Sex: Female

DRUGS (1)
  1. ALBUMIN (HUMAN) [Suspect]
     Dates: start: 19930101, end: 19930101

REACTIONS (1)
  - HEPATITIS C [None]
